FAERS Safety Report 4534279-2 (Version None)
Quarter: 2004Q4

REPORT INFORMATION
  Report Type: 
  Country: None (occurrence: None)
  Receive Date: 20041214
  Receipt Date: 20040825
  Transmission Date: 20050328
  Serious: No
  Sender: FDA-Public Use
  Company Number: 2004231559US

PATIENT
  Age: 32 Year
  Sex: Female
  Weight: 88 kg

DRUGS (4)
  1. BEXTRA [Suspect]
     Indication: INTERVERTEBRAL DISC PROTRUSION
     Dates: start: 20040804, end: 20040810
  2. FLEXERIL [Concomitant]
  3. LORTAB [Concomitant]
  4. PARAFON FORTE [Concomitant]

REACTIONS (25)
  - ABDOMINAL DISTENSION [None]
  - ALOPECIA [None]
  - ANOREXIA [None]
  - ASTHENIA [None]
  - BLOOD GLUCOSE INCREASED [None]
  - CHEST DISCOMFORT [None]
  - CHEST PAIN [None]
  - DIARRHOEA [None]
  - DYSPNOEA [None]
  - FACIAL SPASM [None]
  - FATIGUE [None]
  - GASTRIC DISORDER [None]
  - GASTROINTESTINAL DISORDER [None]
  - HEADACHE [None]
  - HYPERTENSION [None]
  - HYPOAESTHESIA [None]
  - HYPOVENTILATION [None]
  - LISTLESS [None]
  - MENSTRUAL DISORDER [None]
  - NAUSEA [None]
  - ORTHOPNOEA [None]
  - PAIN [None]
  - PARAESTHESIA [None]
  - SWELLING [None]
  - WEIGHT INCREASED [None]
